FAERS Safety Report 9223391 (Version 3)
Quarter: 2013Q4

REPORT INFORMATION
  Report Type: Spontaneous
  Country: AT (occurrence: AT)
  Receive Date: 20130410
  Receipt Date: 20131218
  Transmission Date: 20140711
  Serious: Yes (Hospitalization)
  Sender: FDA-Public Use
  Company Number: AT-VERTEX PHARMACEUTICALS INC.-2013-004692

PATIENT
  Age: 45 Year
  Sex: Female

DRUGS (14)
  1. INCIVO [Suspect]
     Indication: CHRONIC HEPATITIS C
     Dosage: 2250 MG, QD
     Route: 048
     Dates: start: 20120829
  2. PEGASYS [Suspect]
     Indication: CHRONIC HEPATITIS C
     Dosage: DOSAGE FORM: UNSPECIFIED
     Route: 058
     Dates: start: 20120829
  3. COPEGUS [Suspect]
     Indication: CHRONIC HEPATITIS C
     Dosage: 1000 MG, QD
     Route: 048
     Dates: start: 20120829
  4. RISPERDAL [Concomitant]
     Dosage: DOSAGE FORM: UNSPECIFIED
     Route: 065
     Dates: start: 20120925, end: 20121110
  5. BETAMETHASONE CREAM WITH GENTAMICIN [Concomitant]
     Route: 065
  6. UNASYN [Concomitant]
     Dosage: DOSAGE FORM: UNSPECIFIED
     Route: 065
     Dates: end: 20121030
  7. ZYPREXA [Concomitant]
     Dosage: DOSAGE FORM: UNSPECIFIED
     Route: 065
     Dates: start: 20121110
  8. VOLUVEN [Concomitant]
     Dosage: DOSAGE FORM: UNSPECIFIED
     Route: 065
  9. PASPERTIN [Concomitant]
     Dosage: DOSAGE FORM: UNSPECIFIED
     Route: 065
  10. PANTOLOC [Concomitant]
     Dosage: DOSAGE FORM: UNSPECIFIED
     Route: 065
  11. MYCOSTATIN [Concomitant]
     Dosage: DOSAGE FORM: UNKNOWN
     Route: 065
  12. CLEMIZOLE HYDROCHLORIDE [Concomitant]
     Dosage: DOSAGE FORM: UNSPECIFIED
     Route: 065
     Dates: start: 20120912, end: 20121101
  13. ALPRAZOLAM [Concomitant]
     Dosage: DOSAGE FORM: UNSPECIFIED
     Route: 065
     Dates: start: 20120925, end: 20121031
  14. ADVANTAN [Concomitant]
     Dosage: DOSAGE FORM: UNSPECIFIED
     Route: 065
     Dates: start: 20120925

REACTIONS (9)
  - Urinary tract infection [Recovered/Resolved]
  - Panic disorder [Recovered/Resolved]
  - Hypotension [Unknown]
  - General physical health deterioration [Unknown]
  - Gastrointestinal haemorrhage [Recovered/Resolved]
  - Oesophagitis bacterial [Unknown]
  - Staphylococcal infection [Unknown]
  - Circulatory collapse [Recovered/Resolved]
  - Haemoglobin decreased [Unknown]
